FAERS Safety Report 4901510-0 (Version None)
Quarter: 2006Q1

REPORT INFORMATION
  Report Type: 
  Country: None (occurrence: None)
  Receive Date: 20060201
  Receipt Date: 20060201
  Transmission Date: 20060701
  Serious: Yes (Other)
  Sender: FDA-Public Use
  Company Number: None

PATIENT
  Sex: Male
  Weight: 94.8018 kg

DRUGS (15)
  1. VYTORIN [Suspect]
     Indication: DYSLIPIDAEMIA
     Dosage: 5/40 MG PO Q BEDTIME
     Route: 048
     Dates: start: 20050624, end: 20051019
  2. ACETATAMINOPHEN [Concomitant]
  3. ASPIRIN [Concomitant]
  4. ATENOLOL [Concomitant]
  5. CASTELLANI COLORLESS TOP PAINT [Concomitant]
  6. FELODIPINE [Concomitant]
  7. INSULIN NOVOLIN 70/30 (NPH/REG) [Concomitant]
  8. METFORMIN HCL [Concomitant]
  9. NAPROXEN [Concomitant]
  10. OMEPRAZOLE [Concomitant]
  11. OMEPRAZOLE [Concomitant]
  12. PAROXETINE HCL [Concomitant]
  13. PSYLLIUM [Concomitant]
  14. ROSIGLIAZONE MALEATE [Concomitant]
  15. TRAZODONE HCL [Concomitant]

REACTIONS (1)
  - DIARRHOEA [None]
